FAERS Safety Report 4490664-9 (Version None)
Quarter: 2004Q4

REPORT INFORMATION
  Report Type: 
  Country: None (occurrence: None)
  Receive Date: 20041102
  Receipt Date: 20040723
  Transmission Date: 20050328
  Serious: Yes (Other)
  Sender: FDA-Public Use
  Company Number: US-GLAXOSMITHKLINE-A0521834A

PATIENT
  Age: 28 Year
  Sex: Female
  Weight: 59.1 kg

DRUGS (3)
  1. WELLBUTRIN [Suspect]
     Dosage: 300MG PER DAY
     Route: 048
     Dates: end: 20040721
  2. GEODON [Concomitant]
     Dosage: 60MG TWICE PER DAY
     Dates: start: 20030730
  3. TEMAZEPAM [Concomitant]
     Indication: SLEEP DISORDER
     Dosage: 30MG AT NIGHT
     Dates: start: 20040719, end: 20040720

REACTIONS (6)
  - AMNESIA [None]
  - CONFUSIONAL STATE [None]
  - GRAND MAL CONVULSION [None]
  - INCONTINENCE [None]
  - THINKING ABNORMAL [None]
  - TONGUE BITING [None]
